FAERS Safety Report 10513624 (Version 2)
Quarter: 2015Q2

REPORT INFORMATION
  Report Type: Spontaneous
  Country: US (occurrence: US)
  Receive Date: 20141013
  Receipt Date: 20150424
  Transmission Date: 20150821
  Serious: No
  Sender: FDA-Public Use
  Company Number: US-PFIZER INC-2014280182

PATIENT
  Age: 57 Year
  Sex: Female
  Weight: 66 kg

DRUGS (5)
  1. PREMPRO [Concomitant]
     Active Substance: ESTROGENS, CONJUGATED\MEDROXYPROGESTERONE ACETATE
     Indication: MENOPAUSE
     Dosage: UNK, ESTROGENS CONJUGATED-0.3, MEDROXYPROGESTERONE ACETATE-1.5
     Route: 048
     Dates: start: 2010, end: 20150407
  2. PRISTIQ EXTENDED RELEASE [Suspect]
     Active Substance: DESVENLAFAXINE SUCCINATE
     Indication: DEPRESSION
     Dosage: 50 MG, 1X/DAY
     Dates: start: 20141008, end: 20141022
  3. CLONIDINE. [Interacting]
     Active Substance: CLONIDINE
     Indication: INSOMNIA
     Dosage: 0.1 MG, 1X/DAY
     Dates: start: 20141010, end: 20141013
  4. TEMAZEPAM. [Concomitant]
     Active Substance: TEMAZEPAM
     Indication: INSOMNIA
     Dosage: 15 MG, AS NEEDED
  5. PREMPRO [Concomitant]
     Active Substance: ESTROGENS, CONJUGATED\MEDROXYPROGESTERONE ACETATE
     Indication: HOT FLUSH

REACTIONS (8)
  - Chest discomfort [Recovered/Resolved]
  - Decreased appetite [Recovered/Resolved]
  - Flat affect [Recovered/Resolved]
  - Hyperhidrosis [Recovered/Resolved]
  - Thirst [Recovered/Resolved]
  - Drug interaction [Recovered/Resolved]
  - Hyperventilation [Recovered/Resolved]
  - Nausea [Recovered/Resolved]

NARRATIVE: CASE EVENT DATE: 201410
